FAERS Safety Report 15030660 (Version 1)
Quarter: 2018Q2

REPORT INFORMATION
  Report Type: Spontaneous
  Country: NZ (occurrence: NZ)
  Receive Date: 20180619
  Receipt Date: 20180619
  Transmission Date: 20180711
  Serious: Yes (Other)
  Sender: FDA-Public Use
  Company Number: NZ-PFIZER INC-2018248895

PATIENT

DRUGS (2)
  1. PROSTIN E2 [Suspect]
     Active Substance: DINOPROSTONE
     Dosage: 2 MG, HOURLY
     Dates: start: 20180519
  2. PROSTIN E2 [Suspect]
     Active Substance: DINOPROSTONE
     Indication: LABOUR INDUCTION
     Dosage: 2 MG, HOURLY
     Dates: start: 20180518

REACTIONS (1)
  - Foetal distress syndrome [Unknown]
